FAERS Safety Report 11012401 (Version 1)
Quarter: 2015Q2

REPORT INFORMATION
  Report Type: Spontaneous
  Country: US (occurrence: None)
  Receive Date: 20150407
  Receipt Date: 20150407
  Transmission Date: 20150821
  Serious: Yes (Hospitalization)
  Sender: FDA-Public Use
  Company Number: LH201400181

PATIENT
  Age: 38 Year
  Sex: Female

DRUGS (5)
  1. PRENATAL VITAMINS /01549301/ (ASCORBIC ACID, BIOTIN, MINERALS NOS, NICOTINIC ACID, RETINOL, TOCOPHEROL, VITAMIN B NOS, VITAMIN D NOS) [Concomitant]
  2. FOLIC ACID W/VITAMIN B12 (FOLIC ACID, VITAMIN B12 NOS) [Concomitant]
  3. ZYRTEC [Concomitant]
     Active Substance: CETIRIZINE HYDROCHLORIDE
  4. MAKENA [Suspect]
     Active Substance: HYDROXYPROGESTERONE CAPROATE
     Indication: PREMATURE DELIVERY
     Dosage: 250 MG, ONCE WEEKLY, INTRAMUSCULAR
     Route: 030
     Dates: start: 201405, end: 20140625
  5. MAKENA [Suspect]
     Active Substance: HYDROXYPROGESTERONE CAPROATE
     Indication: OFF LABEL USE
     Dosage: 250 MG, ONCE WEEKLY, INTRAMUSCULAR
     Route: 030
     Dates: start: 201405, end: 20140625

REACTIONS (2)
  - Premature labour [None]
  - Off label use [None]

NARRATIVE: CASE EVENT DATE: 201405
